FAERS Safety Report 5026275-6 (Version None)
Quarter: 2006Q2

REPORT INFORMATION
  Report Type: 
  Country: None (occurrence: None)
  Receive Date: 20060608
  Receipt Date: 20060524
  Transmission Date: 20061013
  Serious: Yes (Hospitalization)
  Sender: FDA-Public Use
  Company Number: S06-CAN-02087-01

PATIENT
  Sex: 0

DRUGS (2)
  1. TIAZAC XC (DILTIAZEM HYDROCHLORIDE) [Suspect]
  2. BETA BLOCKER (NOS) [Concomitant]

REACTIONS (1)
  - BRADYCARDIA [None]
